FAERS Safety Report 7637559-7 (Version None)
Quarter: 2011Q3

REPORT INFORMATION
  Report Type: 
  Country: None (occurrence: None)
  Receive Date: 20110726
  Receipt Date: 20110719
  Transmission Date: 20111222
  Serious: Yes (Other)
  Sender: FDA-Public Use
  Company Number: US-PFIZER INC-2011164590

PATIENT
  Age: 47 Year
  Sex: Female

DRUGS (1)
  1. CHANTIX [Suspect]
     Indication: SMOKING CESSATION THERAPY
     Dosage: UNK
     Route: 048
     Dates: start: 20110101, end: 20110101

REACTIONS (6)
  - HALLUCINATION, VISUAL [None]
  - ABNORMAL DREAMS [None]
  - ABDOMINAL DISCOMFORT [None]
  - NAUSEA [None]
  - INSOMNIA [None]
  - VOMITING [None]
